FAERS Safety Report 13897683 (Version 1)
Quarter: 2017Q3

REPORT INFORMATION
  Report Type: Spontaneous
  Country: JP (occurrence: JP)
  Receive Date: 20170823
  Receipt Date: 20170823
  Transmission Date: 20171127
  Serious: Yes (Other)
  Sender: FDA-Public Use
  Company Number: JP-BRISTOL-MYERS SQUIBB COMPANY-BMS-2017-051246

PATIENT
  Age: 83 Year
  Sex: Female
  Weight: 53.2 kg

DRUGS (2)
  1. PREDNISOLONE. [Concomitant]
     Active Substance: PREDNISOLONE
     Indication: PRODUCT USED FOR UNKNOWN INDICATION
     Dosage: 7 MG, QD
     Route: 048
     Dates: start: 20090608
  2. ORENCIA [Suspect]
     Active Substance: ABATACEPT
     Indication: RHEUMATOID ARTHRITIS
     Dosage: 125 MG, UNK
     Route: 058
     Dates: start: 20151201

REACTIONS (6)
  - Pain in extremity [Unknown]
  - Pyrexia [Unknown]
  - Headache [Unknown]
  - Injection site bruising [Unknown]
  - Haemorrhage subcutaneous [Recovered/Resolved]
  - Pruritus [Unknown]

NARRATIVE: CASE EVENT DATE: 20170603
